FAERS Safety Report 9248659 (Version 1)
Quarter: 2013Q1

REPORT INFORMATION
  Report Type: Spontaneous
  Country: US (occurrence: None)
  Receive Date: 20130305
  Receipt Date: 20130305
  Transmission Date: 20140127
  Serious: Yes (Disabling)
  Sender: FDA-Public Use
  Company Number: 163-21880-12053401

PATIENT
  Age: 73 Year
  Sex: Male
  Weight: 62.14 kg

DRUGS (11)
  1. REVLIMID [Suspect]
     Indication: PLASMA CELL MYELOMA
     Dosage: 25 MG, DAY 1 THROUGH 14, PO
     Route: 048
     Dates: start: 201203
  2. VELCADE (BORTEZOMIB) [Suspect]
     Dosage: 1.3 MG/M2, DAYS 1, 4, 8 AND 11, SC
     Route: 058
     Dates: start: 2012
  3. DECADRON (DEXAMETHASONE) [Concomitant]
  4. CITRATE OF MAGNESIUM (MAGNSEIUM CITRATE) [Concomitant]
  5. LISINOPRIL (LISINOPRIL) [Concomitant]
  6. ACYCLOVIR (ACICLOVIR) (ACICLOVIR) [Concomitant]
  7. ASPIRIN (ACETYLSALICYLIC ACID) [Concomitant]
  8. FISH OIL (FISH OIL) [Concomitant]
  9. MULTIVITAMINS WITH IRON (MULTIVITAMINS AND IRON) [Concomitant]
  10. SAW PALMETTO (SERENOA REPENS) [Concomitant]
  11. VITAMINS B12 (CYANOCOBALAMIN) [Concomitant]

REACTIONS (1)
  - Dizziness [None]
